FAERS Safety Report 23937348 (Version 3)
Quarter: 2024Q3

REPORT INFORMATION
  Report Type: Spontaneous
  Country: US (occurrence: US)
  Receive Date: 20240604
  Receipt Date: 20240710
  Transmission Date: 20241017
  Serious: Yes (Other)
  Sender: NOVARTIS
  Company Number: US-002147023-NVSC2024US116159

PATIENT

DRUGS (3)
  1. COSENTYX [Suspect]
     Active Substance: SECUKINUMAB
     Indication: Product used for unknown indication
     Dosage: 150 MG
     Route: 065
  2. COSENTYX [Suspect]
     Active Substance: SECUKINUMAB
     Dosage: 300 MG, QMO
     Route: 065
  3. METHOTREXATE [Suspect]
     Active Substance: METHOTREXATE
     Indication: Arthritis
     Dosage: 25 MG, QW
     Route: 065

REACTIONS (14)
  - Ankylosing spondylitis [Unknown]
  - Back pain [Unknown]
  - Psoriatic arthropathy [Unknown]
  - Tendon pain [Unknown]
  - Musculoskeletal stiffness [Unknown]
  - Arthritis [Unknown]
  - Pain [Unknown]
  - Fatigue [Unknown]
  - Spinal pain [Unknown]
  - Peripheral swelling [Unknown]
  - Nausea [Unknown]
  - Swelling [Unknown]
  - Insomnia [Unknown]
  - Drug ineffective [Unknown]
